FAERS Safety Report 13937397 (Version 2)
Quarter: 2018Q2

REPORT INFORMATION
  Report Type: Report from Study
  Country: BR (occurrence: BR)
  Receive Date: 20170905
  Receipt Date: 20180606
  Transmission Date: 20180711
  Serious: Yes (Hospitalization, Other)
  Sender: FDA-Public Use
  Company Number: PHHY2017BR129890

PATIENT
  Sex: Female
  Weight: 60 kg

DRUGS (2)
  1. CALCIUM [Concomitant]
     Active Substance: CALCIUM
     Indication: PRODUCT USED FOR UNKNOWN INDICATION
     Route: 065
  2. ACLASTA [Suspect]
     Active Substance: ZOLEDRONIC ACID
     Indication: OSTEOPOROSIS
     Dosage: 1 DF (5 MG/100 ML), Q12MO
     Route: 042
     Dates: start: 2013, end: 2013

REACTIONS (5)
  - Pneumonia [Unknown]
  - Dementia [Unknown]
  - Muscle rigidity [Unknown]
  - Mobility decreased [Unknown]
  - Sensitivity to weather change [Unknown]
